FAERS Safety Report 8329471-5 (Version None)
Quarter: 2012Q2

REPORT INFORMATION
  Report Type: 
  Country: None (occurrence: None)
  Receive Date: 20120502
  Receipt Date: 20120502
  Transmission Date: 20120825
  Serious: Yes (Death)
  Sender: FDA-Public Use
  Company Number: AU-ROCHE-1060138

PATIENT
  Sex: Female
  Weight: 108 kg

DRUGS (6)
  1. DOXORUBICIN HCL [Concomitant]
     Route: 065
     Dates: end: 20110901
  2. ABRAXANE [Concomitant]
     Indication: BREAST CANCER METASTATIC
     Route: 042
     Dates: start: 20111018
  3. FUROSEMIDE [Concomitant]
     Route: 065
  4. HERCEPTIN [Suspect]
     Indication: BREAST CANCER METASTATIC
     Route: 042
     Dates: start: 20111108, end: 20111108
  5. PANTOPRAZOLE [Concomitant]
     Route: 065
  6. MELOXICAM [Concomitant]
     Route: 065

REACTIONS (3)
  - ANAPHYLACTIC REACTION [None]
  - PNEUMONITIS [None]
  - CARDIAC FAILURE [None]
